FAERS Safety Report 5388449-4 (Version None)
Quarter: 2007Q3

REPORT INFORMATION
  Report Type: 
  Country: None (occurrence: None)
  Receive Date: 20070711
  Receipt Date: 20070628
  Transmission Date: 20080115
  Serious: Yes (Life-Threatening, Other)
  Sender: FDA-Public Use
  Company Number: 16911

PATIENT
  Age: 70 Year
  Sex: Female

DRUGS (5)
  1. PACLITAXEL [Suspect]
     Indication: BREAST CANCER
     Dosage: 300 MG   IV
     Route: 042
     Dates: start: 20070621, end: 20070621
  2. ZOFRAN [Concomitant]
  3. DEXAMETHASONE 0.5MG TAB [Concomitant]
  4. TRIMETON [Concomitant]
  5. RANIDIL [Concomitant]

REACTIONS (2)
  - HYPOTENSION [None]
  - LOSS OF CONSCIOUSNESS [None]
